FAERS Safety Report 18610973 (Version 1)
Quarter: 2020Q4

REPORT INFORMATION
  Report Type: Spontaneous
  Country: AU (occurrence: AU)
  Receive Date: 20201213
  Receipt Date: 20201213
  Transmission Date: 20210114
  Serious: Yes (Other)
  Sender: FDA-Public Use
  Company Number: None

PATIENT
  Age: 58 Year
  Sex: Female
  Weight: 85 kg

DRUGS (3)
  1. NII [Concomitant]
  2. CADUET [Concomitant]
     Active Substance: AMLODIPINE BESYLATE\ATORVASTATIN CALCIUM
  3. CONTRAVE [Suspect]
     Active Substance: BUPROPION HYDROCHLORIDE\NALTREXONE HYDROCHLORIDE
     Indication: WEIGHT DECREASED
     Dosage: ?          QUANTITY:2 TABLET(S);?
     Route: 048
     Dates: start: 20201117, end: 20201213

REACTIONS (8)
  - Pruritus [None]
  - Erythema [None]
  - Erythema multiforme [None]
  - Skin lesion [None]
  - Skin discolouration [None]
  - Nausea [None]
  - Skin swelling [None]
  - Hot flush [None]

NARRATIVE: CASE EVENT DATE: 20201212
